FAERS Safety Report 25937276 (Version 1)
Quarter: 2025Q4

REPORT INFORMATION
  Report Type: Report from Study
  Country: US (occurrence: US)
  Receive Date: 20251017
  Receipt Date: 20251017
  Transmission Date: 20260118
  Serious: Yes (Hospitalization)
  Sender: ABBVIE
  Company Number: US-ABBVIE-6506675

PATIENT
  Age: 56 Year
  Sex: Male

DRUGS (1)
  1. RINVOQ [Suspect]
     Active Substance: UPADACITINIB
     Indication: Colitis ulcerative
     Route: 048
     Dates: start: 2024

REACTIONS (5)
  - Illness [Recovering/Resolving]
  - Haematochezia [Unknown]
  - Tooth disorder [Unknown]
  - Hypertension [Unknown]
  - Polyp [Unknown]

NARRATIVE: CASE EVENT DATE: 20251001
